FAERS Safety Report 18409610 (Version 1)
Quarter: 2020Q4

REPORT INFORMATION
  Report Type: Spontaneous
  Country: US (occurrence: US)
  Receive Date: 20201021
  Receipt Date: 20201021
  Transmission Date: 20210114
  Serious: No
  Sender: FDA-Public Use
  Company Number: US-SA-2020SA294741

PATIENT

DRUGS (1)
  1. CERDELGA [Suspect]
     Active Substance: ELIGLUSTAT
     Dosage: 2 DF, QD
     Route: 065
     Dates: start: 20181207

REACTIONS (3)
  - Chitotriosidase increased [Unknown]
  - Glucosylsphingosine increased [Unknown]
  - Laboratory test interference [Unknown]
